FAERS Safety Report 15924073 (Version 1)
Quarter: 2019Q1

REPORT INFORMATION
  Report Type: Spontaneous
  Country: DK (occurrence: DK)
  Receive Date: 20190206
  Receipt Date: 20190206
  Transmission Date: 20190417
  Serious: Yes (Other)
  Sender: FDA-Public Use
  Company Number: DK-AUROBINDO-AUR-APL-2019-005510

PATIENT

DRUGS (17)
  1. SALBUTAMOL [Concomitant]
     Active Substance: ALBUTEROL
     Indication: ASTHMA
     Dosage: VED BEHOV STYRKE: 0.2 MG I DISKOS
     Route: 055
     Dates: start: 20130930
  2. MACROGOL [Concomitant]
     Active Substance: POLYETHYLENE GLYCOLS
     Indication: CONSTIPATION
     Dosage: UNK, VED BEHOV
     Route: 048
     Dates: start: 20180705, end: 20181119
  3. ACETYLSALICYLIC ACID [Concomitant]
     Active Substance: ASPIRIN
     Indication: ANTICOAGULANT THERAPY
     Dosage: 75 MILLIGRAM, ONCE A DAY, STYRKE: 75 MG
     Route: 048
     Dates: start: 20171122, end: 20181119
  4. ALENDRONIC ACID 70 MG TABLETS [Suspect]
     Active Substance: ALENDRONIC ACID
     Indication: OSTEOPOROSIS
     Dosage: 70 MILLIGRAM, EVERY WEEK
     Route: 048
     Dates: start: 2010, end: 2012
  5. VENLAFAXINE [Concomitant]
     Active Substance: VENLAFAXINE HYDROCHLORIDE
     Indication: DEPRESSION
     Dosage: 300 MILLIGRAM, ONCE A DAY
     Route: 048
     Dates: start: 20170213
  6. PARACETAMOL [Concomitant]
     Active Substance: ACETAMINOPHEN
     Indication: PAIN
     Dosage: UNK, VED BEHOV STYRKE: 665MG
     Route: 048
     Dates: start: 20170717
  7. VITAMIN D2 + CALCIUM [Concomitant]
     Indication: OSTEOPOROSIS
     Dosage: 2 DOSAGE FORM, ONCE A DAY, STYRKE: 400MG + 19 MIKROGRAM
     Route: 048
     Dates: start: 20120807
  8. METOPROLOL. [Concomitant]
     Active Substance: METOPROLOL
     Indication: CARDIAC FAILURE
     Dosage: 50 MILLIGRAM, ONCE A DAY, STYRKE: 25 MG
     Route: 048
     Dates: start: 20160512
  9. OXYCODONE [Concomitant]
     Active Substance: OXYCODONE
     Indication: PAIN
     Dosage: 20 MILLIGRAM, ONCE A DAY, STYRKE: 10 MG
     Route: 048
     Dates: start: 20161028
  10. TIOTROPIUM [Concomitant]
     Active Substance: TIOTROPIUM
     Indication: CHRONIC OBSTRUCTIVE PULMONARY DISEASE
     Dosage: 2 DOSAGE FORM, ONCE A DAY, STYRKE: 2,5MG
     Route: 055
     Dates: start: 20150102
  11. FUROSEMIDE. [Concomitant]
     Active Substance: FUROSEMIDE
     Indication: DIURETIC THERAPY
     Dosage: 80 MILLIGRAM, ONCE A DAY, STYRKE: 40 MG
     Route: 048
     Dates: start: 20160512
  12. FORSTEO [Suspect]
     Active Substance: TERIPARATIDE
     Indication: PRODUCT USED FOR UNKNOWN INDICATION
     Dosage: 0.08 MILLILITER, ONCE A DAY, STYRKE: 20 MIKROG/80 MIKROL
     Route: 065
     Dates: start: 201206, end: 2015
  13. BUDESONIDE;FORMOTEROL [Concomitant]
     Indication: CHRONIC OBSTRUCTIVE PULMONARY DISEASE
     Dosage: 2 DOSAGE FORM, ONCE A DAY, STYRKE: 9 + 320 MIKROG/DOSIS, STYRKE: 9 + 320 MIKROG/DOSIS
     Route: 055
     Dates: start: 20170126
  14. PREGABALIN. [Concomitant]
     Active Substance: PREGABALIN
     Indication: THINKING ABNORMAL
     Dosage: 4 MILLILITER, ONCE A DAY, STYRKE . 20 MG/ML
     Route: 048
     Dates: start: 20170306
  15. ALENDRONIC ACID 70 MG TABLETS [Suspect]
     Active Substance: ALENDRONIC ACID
     Dosage: 70 MILLIGRAM, EVERY WEEK, STYRKE: 70 MG
     Route: 048
     Dates: start: 201701
  16. QUININE [Concomitant]
     Active Substance: QUININE
     Indication: MUSCLE SPASMS
     Dosage: 100 MILLIGRAM, ONCE A DAY, STYRKE: 100 MG
     Route: 048
     Dates: start: 20161115, end: 20181119
  17. PANTOPRAZOLE SODIUM SESQUIHYDRATE [Concomitant]
     Active Substance: PANTOPRAZOLE SODIUM
     Indication: GASTROOESOPHAGEAL REFLUX DISEASE
     Dosage: 40 MILLIGRAM, ONCE A DAY, STYRKE: 40 MG
     Route: 048
     Dates: start: 20161220

REACTIONS (2)
  - Exposed bone in jaw [Not Recovered/Not Resolved]
  - Osteonecrosis of jaw [Not Recovered/Not Resolved]

NARRATIVE: CASE EVENT DATE: 2018
